FAERS Safety Report 22350008 (Version 1)
Quarter: 2023Q2

REPORT INFORMATION
  Report Type: Spontaneous
  Country: US (occurrence: US)
  Receive Date: 20230522
  Receipt Date: 20230522
  Transmission Date: 20230721
  Serious: No
  Sender: FDA-Public Use
  Company Number: US-BAUSCH-BL-2023-007194

PATIENT
  Age: 69 Year
  Sex: Male
  Weight: 97.61 kg

DRUGS (1)
  1. JUBLIA [Suspect]
     Active Substance: EFINACONAZOLE
     Indication: Onychomycosis
     Route: 061
     Dates: start: 2021

REACTIONS (3)
  - Ingrowing nail [Unknown]
  - Product use issue [Unknown]
  - Drug ineffective [Unknown]
